FAERS Safety Report 17795916 (Version 3)
Quarter: 2020Q2

REPORT INFORMATION
  Report Type: Spontaneous
  Country: US (occurrence: US)
  Receive Date: 20200516
  Receipt Date: 20200604
  Transmission Date: 20200714
  Serious: No
  Sender: FDA-Public Use
  Company Number: NVSC2020US134214

PATIENT
  Sex: Female

DRUGS (2)
  1. MEKINIST [Suspect]
     Active Substance: TRAMETINIB DIMETHYL SULFOXIDE
     Indication: VAGINAL CANCER
     Dosage: 2 MG, QD
     Route: 048
     Dates: start: 20200331
  2. TAFINLAR [Suspect]
     Active Substance: DABRAFENIB MESYLATE
     Indication: VAGINAL CANCER
     Dosage: 150 MG, BID
     Route: 048
     Dates: start: 20200313

REACTIONS (5)
  - Cough [Unknown]
  - Retching [Unknown]
  - Acne [Unknown]
  - Dysphagia [Unknown]
  - Product use in unapproved indication [Unknown]
